FAERS Safety Report 21642991 (Version 1)
Quarter: 2022Q4

REPORT INFORMATION
  Report Type: Spontaneous
  Country: DE (occurrence: DE)
  Receive Date: 20221125
  Receipt Date: 20221125
  Transmission Date: 20230112
  Serious: Yes (Other)
  Sender: FDA-Public Use
  Company Number: DE-002147023-NVSC2022DE261250

PATIENT
  Age: 52 Year
  Sex: Female

DRUGS (3)
  1. MYCOPHENOLATE MOFETIL [Suspect]
     Active Substance: MYCOPHENOLATE MOFETIL
     Indication: Central nervous system lesion
     Dosage: 2 G, QD
     Route: 065
  2. METHYLPREDNISOLONE [Concomitant]
     Active Substance: METHYLPREDNISOLONE
     Indication: Central nervous system lesion
     Dosage: UNK(HIGH DOSE FOLLOWED BY TAPERING)
     Route: 048
  3. PREDNISOLONE [Concomitant]
     Active Substance: PREDNISOLONE
     Indication: Central nervous system lesion
     Dosage: 5 MG, QD (GRADUALLY TAPERED)
     Route: 065

REACTIONS (3)
  - Central nervous system lesion [Unknown]
  - Condition aggravated [Unknown]
  - Product use in unapproved indication [Unknown]
